FAERS Safety Report 22016975 (Version 2)
Quarter: 2023Q1

REPORT INFORMATION
  Report Type: Spontaneous
  Country: US (occurrence: US)
  Receive Date: 20230221
  Receipt Date: 20230306
  Transmission Date: 20230417
  Serious: No
  Sender: FDA-Public Use
  Company Number: US-LUPIN PHARMACEUTICALS INC.-2023-01265

PATIENT
  Sex: Male

DRUGS (2)
  1. QUINAPRIL [Suspect]
     Active Substance: QUINAPRIL
     Indication: Cardiac disorder
     Dosage: UNK UNK, QD
     Route: 065
  2. QUINAPRIL [Suspect]
     Active Substance: QUINAPRIL
     Dosage: UNK UNK, QD
     Route: 065

REACTIONS (2)
  - Recalled product administered [Unknown]
  - No adverse event [Unknown]
